FAERS Safety Report 7816139-4 (Version None)
Quarter: 2011Q4

REPORT INFORMATION
  Report Type: 
  Country: None (occurrence: None)
  Receive Date: 20111015
  Receipt Date: 20111003
  Transmission Date: 20120403
  Serious: Yes (Hospitalization)
  Sender: FDA-Public Use
  Company Number: US-ROCHE-1002646

PATIENT

DRUGS (3)
  1. PACLITAXEL [Suspect]
     Indication: BREAST CANCER
     Route: 042
     Dates: start: 20110126
  2. LAPATINIB [Suspect]
     Indication: BREAST CANCER
     Route: 048
     Dates: start: 20110126
  3. HERCEPTIN [Suspect]
     Indication: BREAST CANCER
     Route: 042
     Dates: start: 20110126

REACTIONS (1)
  - ASPARTATE AMINOTRANSFERASE INCREASED [None]
